FAERS Safety Report 7305519-1 (Version None)
Quarter: 2011Q1

REPORT INFORMATION
  Report Type: 
  Country: None (occurrence: None)
  Receive Date: 20110210
  Receipt Date: 20110126
  Transmission Date: 20110831
  Serious: Yes (Death, Hospitalization, Other)
  Sender: FDA-Public Use
  Company Number: AUR-APL-2011-00331

PATIENT
  Age: 69 Year
  Sex: Male
  Weight: 73 kg

DRUGS (11)
  1. ASCAL [Concomitant]
  2. TRAMADOL HCL [Concomitant]
  3. METFORMIN [Suspect]
     Indication: PERIPHERAL ISCHAEMIA
     Dosage: BID
     Dates: start: 20081001
  4. PLAVIX [Concomitant]
  5. INSULIN [Concomitant]
  6. LYRICA [Suspect]
     Indication: PAIN IN EXTREMITY
     Dosage: 300MG -  DAILY
     Dates: start: 20080101
  7. PANTOZOL [Concomitant]
  8. MOVICOLON [Concomitant]
  9. OXICONTIN [Concomitant]
  10. ACENOCOUMAROL [Concomitant]
  11. DILTIAZEM HCL [Concomitant]

REACTIONS (4)
  - PLEURAL CALCIFICATION [None]
  - ALVEOLITIS [None]
  - PULMONARY FIBROSIS [None]
  - INFLUENZA VIRUS TEST POSITIVE [None]
